FAERS Safety Report 4785110-1 (Version None)
Quarter: 2005Q3

REPORT INFORMATION
  Report Type: 
  Country: None (occurrence: None)
  Receive Date: 20050928
  Receipt Date: 20050909
  Transmission Date: 20060218
  Serious: Yes (Other)
  Sender: FDA-Public Use
  Company Number: JP_050807270

PATIENT
  Age: 69 Year
  Sex: Male

DRUGS (2)
  1. GEMZAR [Suspect]
     Indication: PANCREATIC CARCINOMA
     Dosage: 1400 MG OTHER
     Dates: start: 20050601, end: 20050701
  2. CHINESE MEDICINE [Concomitant]

REACTIONS (1)
  - PNEUMONITIS [None]
